FAERS Safety Report 5339402-8 (Version None)
Quarter: 2007Q2

REPORT INFORMATION
  Report Type: 
  Country: None (occurrence: None)
  Receive Date: 20070525
  Receipt Date: 20070514
  Transmission Date: 20071010
  Serious: Yes (Hospitalization)
  Sender: FDA-Public Use
  Company Number: 2007AL001989

PATIENT
  Sex: Male

DRUGS (4)
  1. SERTRALINE HYDROCHLORIDE [Suspect]
     Indication: DEPRESSION
     Dosage: 50 MG;QD;TRPL
     Route: 064
     Dates: start: 20070101
  2. PENICILLIN G [Concomitant]
  3. GENTAMICIN [Concomitant]
  4. FLUOXETINE [Concomitant]

REACTIONS (10)
  - CAESAREAN SECTION [None]
  - CONVULSION NEONATAL [None]
  - DRUG EXPOSURE DURING PREGNANCY [None]
  - GRUNTING [None]
  - HYPERVIGILANCE [None]
  - MOVEMENT DISORDER [None]
  - NEONATAL DISORDER [None]
  - NEONATAL TACHYPNOEA [None]
  - POLYHYDRAMNIOS [None]
  - TREMOR NEONATAL [None]
